FAERS Safety Report 5374483-7 (Version None)
Quarter: 2007Q2

REPORT INFORMATION
  Report Type: 
  Country: None (occurrence: None)
  Receive Date: 20070629
  Receipt Date: 20070622
  Transmission Date: 20071010
  Serious: Yes (Hospitalization)
  Sender: FDA-Public Use
  Company Number: GB-BAYER-200710363BNE

PATIENT
  Age: 24 Year
  Sex: Female
  Weight: 55 kg

DRUGS (1)
  1. CANESTEN COMBI [Suspect]
     Route: 067
     Dates: start: 20070320

REACTIONS (1)
  - VAGINAL HAEMORRHAGE [None]
